FAERS Safety Report 4319306-X (Version None)
Quarter: 2004Q1

REPORT INFORMATION
  Report Type: 
  Country: None (occurrence: None)
  Receive Date: 20040316
  Receipt Date: 20040304
  Transmission Date: 20041129
  Serious: Yes (Death)
  Sender: FDA-Public Use
  Company Number: CA-JNJFOC-20040301625

PATIENT
  Age: 14 Year
  Sex: Male

DRUGS (1)
  1. DURAGESIC [Suspect]
     Indication: INFECTIOUS MONONUCLEOSIS
     Dosage: TRANSDERMAL
     Route: 062
     Dates: start: 20040106, end: 20040107

REACTIONS (1)
  - DEATH [None]
